FAERS Safety Report 15652374 (Version 1)
Quarter: 2018Q4

REPORT INFORMATION
  Report Type: Spontaneous
  Country: US (occurrence: US)
  Receive Date: 20181123
  Receipt Date: 20181123
  Transmission Date: 20190205
  Serious: No
  Sender: FDA-Public Use
  Company Number: US-FOUNDATIONCONSUMERHC-2018-US-014138

PATIENT
  Age: 24 Year
  Sex: Female
  Weight: 88.45 kg

DRUGS (3)
  1. UNSPECIFIED VITAMINS [Concomitant]
     Active Substance: VITAMINS
  2. ^NATURAL TEAS^ [Concomitant]
  3. PLAN B ONE-STEP [Suspect]
     Active Substance: LEVONORGESTREL
     Indication: POST COITAL CONTRACEPTION
     Dosage: 1.5 MG
     Route: 048
     Dates: start: 20180819, end: 20180819

REACTIONS (6)
  - Nausea [Recovered/Resolved]
  - Depression [Recovered/Resolved]
  - Menstruation delayed [Recovered/Resolved]
  - Constipation [Recovered/Resolved]
  - Polymenorrhoea [Unknown]
  - Anxiety [Recovered/Resolved]

NARRATIVE: CASE EVENT DATE: 20180819
